FAERS Safety Report 5409747-1 (Version None)
Quarter: 2007Q3

REPORT INFORMATION
  Report Type: 
  Country: None (occurrence: None)
  Receive Date: 20070809
  Receipt Date: 20070806
  Transmission Date: 20080115
  Serious: Yes (Death, Disabling, Other)
  Sender: FDA-Public Use
  Company Number: B0482129A

PATIENT
  Age: 74 Year
  Sex: Male

DRUGS (6)
  1. ZOVIRAX [Suspect]
     Indication: HERPES ZOSTER
     Dosage: 250MG SEE DOSAGE TEXT
     Route: 042
     Dates: start: 20070730, end: 20070801
  2. FOIPAN [Concomitant]
     Route: 048
  3. SELBEX [Concomitant]
     Route: 048
  4. FAMOTIDINE [Concomitant]
     Route: 048
  5. MYSLEE [Concomitant]
     Route: 048
  6. CLEBOPRIDE MALATE [Concomitant]
     Route: 048

REACTIONS (3)
  - CARDIO-RESPIRATORY ARREST [None]
  - DEATH [None]
  - LOSS OF CONTROL OF LEGS [None]
